FAERS Safety Report 10729294 (Version 1)
Quarter: 2015Q1

REPORT INFORMATION
  Report Type: Spontaneous
  Country: US (occurrence: None)
  Receive Date: 20150120
  Receipt Date: 20150120
  Transmission Date: 20150721
  Serious: Yes (Other)
  Sender: FDA-Public Use
  Company Number: None

PATIENT
  Age: 49 Year
  Sex: Female
  Weight: 59.88 kg

DRUGS (1)
  1. TIZANIDINE (TIZANIDINE) [Suspect]
     Active Substance: TIZANIDINE
     Indication: MUSCLE SPASMS
     Dosage: 1 PILL
     Route: 048
     Dates: start: 20150112, end: 20150114

REACTIONS (4)
  - Chromaturia [None]
  - Abdominal pain upper [None]
  - Faeces discoloured [None]
  - Fatigue [None]

NARRATIVE: CASE EVENT DATE: 20150116
